FAERS Safety Report 15691374 (Version 10)
Quarter: 2020Q1

REPORT INFORMATION
  Report Type: Report from Study
  Country: CA (occurrence: CA)
  Receive Date: 20181205
  Receipt Date: 20200310
  Transmission Date: 20200409
  Serious: Yes (Other)
  Sender: FDA-Public Use
  Company Number: CA-TAKEDA-2017TUS014191

PATIENT
  Age: 54 Year
  Sex: Female

DRUGS (21)
  1. CRESTOR [Concomitant]
     Active Substance: ROSUVASTATIN CALCIUM
     Dosage: 20 MILLIGRAM
  2. FOLIC ACID. [Concomitant]
     Active Substance: FOLIC ACID
     Dosage: UNK, 1/WEEK
  3. VEDOLIZUMAB [Suspect]
     Active Substance: VEDOLIZUMAB
     Dosage: 300 MILLIGRAM
     Route: 042
  4. VEDOLIZUMAB [Suspect]
     Active Substance: VEDOLIZUMAB
     Dosage: 300 MILLIGRAM
     Route: 042
  5. PAXIL [Concomitant]
     Active Substance: PAROXETINE HYDROCHLORIDE
     Dosage: 20 MILLIGRAM
  6. CANNABIS SATIVA OIL [Concomitant]
     Active Substance: CANNABIS SATIVA SUBSP. INDICA TOP
     Indication: INTERVERTEBRAL DISC PROTRUSION
     Dosage: 0.25 MILLILITER
  7. VEDOLIZUMAB [Suspect]
     Active Substance: VEDOLIZUMAB
     Indication: CROHN^S DISEASE
     Dosage: 300 MILLIGRAM
     Route: 042
     Dates: start: 20170518
  8. VEDOLIZUMAB [Suspect]
     Active Substance: VEDOLIZUMAB
     Dosage: 300 MILLIGRAM
     Route: 042
  9. ELMIRON [Concomitant]
     Active Substance: PENTOSAN POLYSULFATE SODIUM
     Dosage: UNK
  10. PREDNISONE. [Concomitant]
     Active Substance: PREDNISONE
     Dosage: UNK
  11. VESICARE [Concomitant]
     Active Substance: SOLIFENACIN SUCCINATE
     Dosage: 10 MILLIGRAM
  12. VITAMIN B12 [Concomitant]
     Active Substance: CYANOCOBALAMIN
     Dosage: UNK UNK, QD
     Route: 048
  13. MAGNESIUM [Concomitant]
     Active Substance: MAGNESIUM
     Dosage: 420 MILLIGRAM, TID
  14. METFORMIN [Concomitant]
     Active Substance: METFORMIN HYDROCHLORIDE
     Dosage: UNK
  15. LISINOPRIL. [Concomitant]
     Active Substance: LISINOPRIL
     Dosage: 20 MILLIGRAM
  16. NORMACALM [Concomitant]
     Dosage: UNK, QD
  17. SYNTHROID [Concomitant]
     Active Substance: LEVOTHYROXINE SODIUM
     Dosage: 137 MICROGRAM
  18. NASONEX [Concomitant]
     Active Substance: MOMETASONE FUROATE
     Dosage: UNK, BID
     Route: 045
  19. VEDOLIZUMAB [Suspect]
     Active Substance: VEDOLIZUMAB
     Dosage: 300 MILLIGRAM
     Route: 042
  20. VEDOLIZUMAB [Suspect]
     Active Substance: VEDOLIZUMAB
     Dosage: 300 MILLIGRAM
     Route: 042
  21. RABEPRAZOLE [Concomitant]
     Active Substance: RABEPRAZOLE
     Dosage: 20 MILLIGRAM

REACTIONS (19)
  - Cystitis interstitial [Unknown]
  - Haemoglobin decreased [Not Recovered/Not Resolved]
  - Pyrexia [Not Recovered/Not Resolved]
  - Frequent bowel movements [Not Recovered/Not Resolved]
  - Colitis ulcerative [Not Recovered/Not Resolved]
  - Nausea [Unknown]
  - Pneumonia [Recovered/Resolved]
  - Sinusitis [Not Recovered/Not Resolved]
  - Increased tendency to bruise [Not Recovered/Not Resolved]
  - Muscle spasms [Not Recovered/Not Resolved]
  - Platelet count decreased [Unknown]
  - Condition aggravated [Unknown]
  - Blood magnesium decreased [Unknown]
  - Abdominal pain [Not Recovered/Not Resolved]
  - Crohn^s disease [Unknown]
  - Diarrhoea [Unknown]
  - Cyst [Unknown]
  - Irritable bowel syndrome [Unknown]
  - Herpes zoster [Unknown]

NARRATIVE: CASE EVENT DATE: 2017
